FAERS Safety Report 13666046 (Version 1)
Quarter: 2017Q2

REPORT INFORMATION
  Report Type: Spontaneous
  Country: ES (occurrence: ES)
  Receive Date: 20170619
  Receipt Date: 20170619
  Transmission Date: 20170830
  Serious: Yes (Hospitalization, Other)
  Sender: FDA-Public Use
  Company Number: ES-B.I. PHARMACEUTICALS,INC./RIDGEFIELD-2017-BI-034480

PATIENT
  Age: 83 Year
  Sex: Male

DRUGS (11)
  1. OMNI OCAS [Suspect]
     Active Substance: TAMSULOSIN HYDROCHLORIDE
     Indication: PRODUCT USED FOR UNKNOWN INDICATION
     Route: 048
     Dates: start: 2016
  2. PRADAXA [Suspect]
     Active Substance: DABIGATRAN ETEXILATE MESYLATE
     Indication: PRODUCT USED FOR UNKNOWN INDICATION
     Route: 065
     Dates: start: 2016
  3. EMCONCOR COR [Suspect]
     Active Substance: BISOPROLOL
     Dosage: INCREASED DOSE
     Route: 048
  4. CARDYL [Suspect]
     Active Substance: ATORVASTATIN CALCIUM
     Indication: CARDIAC FAILURE
     Route: 048
     Dates: start: 2016, end: 20170217
  5. CARDURAN NEO [Suspect]
     Active Substance: DOXAZOSIN MESYLATE
     Indication: CARDIAC FAILURE
     Route: 048
     Dates: start: 2016, end: 20170217
  6. APROVEL [Suspect]
     Active Substance: IRBESARTAN
     Dosage: INCREASED DOSE
     Route: 048
  7. HIGROTONA [Suspect]
     Active Substance: CHLORTHALIDONE
     Indication: CARDIAC FAILURE
     Route: 048
     Dates: start: 2016, end: 20170217
  8. CARDURAN NEO [Suspect]
     Active Substance: DOXAZOSIN MESYLATE
     Dosage: INCREASED DOSE
     Route: 048
  9. APROVEL [Suspect]
     Active Substance: IRBESARTAN
     Indication: CARDIAC FAILURE
     Route: 048
     Dates: start: 2016, end: 20170217
  10. PRADAXA [Suspect]
     Active Substance: DABIGATRAN ETEXILATE MESYLATE
     Dosage: INCREASED DOSE
     Route: 048
  11. EMCONCOR COR [Suspect]
     Active Substance: BISOPROLOL
     Indication: PRODUCT USED FOR UNKNOWN INDICATION
     Route: 048
     Dates: start: 2016

REACTIONS (6)
  - Drug interaction [Unknown]
  - Cardiac failure [Unknown]
  - Acute respiratory failure [Unknown]
  - Urinary tract infection [Unknown]
  - Presyncope [Recovering/Resolving]
  - Head injury [Recovered/Resolved]

NARRATIVE: CASE EVENT DATE: 20170217
